FAERS Safety Report 25648032 (Version 2)
Quarter: 2025Q3

REPORT INFORMATION
  Report Type: Spontaneous
  Country: GB (occurrence: GB)
  Receive Date: 20250806
  Receipt Date: 20250828
  Transmission Date: 20251021
  Serious: Yes (Hospitalization, Other)
  Sender: ALKEM
  Company Number: None

PATIENT
  Age: 55 Year
  Sex: Male

DRUGS (7)
  1. FINGOLIMOD [Suspect]
     Active Substance: FINGOLIMOD
     Indication: Relapsing-remitting multiple sclerosis
     Route: 065
     Dates: start: 2017
  2. FINGOLIMOD [Suspect]
     Active Substance: FINGOLIMOD
     Dosage: 0.25 MILLIGRAM, QD
     Route: 048
     Dates: start: 20180131, end: 20220224
  3. ATORVASTATIN [Concomitant]
     Active Substance: ATORVASTATIN
     Indication: Product used for unknown indication
     Route: 065
  4. EZETIMIBE [Concomitant]
     Active Substance: EZETIMIBE
     Indication: Product used for unknown indication
     Route: 065
  5. LANSOPRAZOLE [Concomitant]
     Active Substance: LANSOPRAZOLE
     Indication: Product used for unknown indication
     Route: 065
  6. METRONIDAZOLE [Concomitant]
     Active Substance: METRONIDAZOLE
     Indication: Product used for unknown indication
     Route: 065
  7. TETRACYCLINE [Concomitant]
     Active Substance: TETRACYCLINE
     Indication: Product used for unknown indication
     Route: 065

REACTIONS (8)
  - Haemorrhagic infarction [Recovered/Resolved]
  - Dysarthria [Unknown]
  - Confusional state [Unknown]
  - Cerebrovascular accident [Unknown]
  - Urosepsis [Unknown]
  - Urinary tract infection [Unknown]
  - Endocarditis [Unknown]
  - Enterococcus test positive [Unknown]

NARRATIVE: CASE EVENT DATE: 20220216
